FAERS Safety Report 5144356-3 (Version None)
Quarter: 2006Q4

REPORT INFORMATION
  Report Type: 
  Country: None (occurrence: None)
  Receive Date: 20061030
  Receipt Date: 20061020
  Transmission Date: 20070319
  Serious: Yes (Other)
  Sender: FDA-Public Use
  Company Number: 231536

PATIENT
  Age: 87 Year
  Sex: Female
  Weight: 70.7 kg

DRUGS (12)
  1. LUCENTIS [Suspect]
     Indication: MACULAR DEGENERATION
     Dosage: INTRAVITREAL
     Dates: start: 20060713
  2. BUMEX [Concomitant]
  3. LEVOXYL [Concomitant]
  4. DEMADEX [Concomitant]
  5. ZAROXOLYN [Concomitant]
  6. BIO-QUINONE Q10 (UBIDECARENONE) [Concomitant]
  7. CONCOMITANT DRUG [Concomitant]
  8. MILK THISTLE (SILYMARIN) [Concomitant]
  9. CALCIUM (CALCIUM NOS) [Concomitant]
  10. KLOR-CON [Concomitant]
  11. OCUVITE (ASCORBIC ACID, COPPER NOS, LUTEIN, SELENIUM NOS, VITAMIN A, V [Concomitant]
  12. CHERRY (CHERRY) [Concomitant]

REACTIONS (4)
  - ASTHENIA [None]
  - CHILLS [None]
  - DYSPNOEA [None]
  - NAUSEA [None]
